FAERS Safety Report 11680496 (Version 2)
Quarter: 2015Q4

REPORT INFORMATION
  Report Type: Spontaneous
  Country: US (occurrence: US)
  Receive Date: 20151027
  Receipt Date: 20151110
  Transmission Date: 20160304
  Serious: No
  Sender: FDA-Public Use
  Company Number: US-ELI_LILLY_AND_COMPANY-US201009005190

PATIENT
  Age: 86 Year
  Sex: Female

DRUGS (6)
  1. FORTEO [Suspect]
     Active Substance: TERIPARATIDE
     Dosage: 20 UG, QD
     Route: 058
  2. FORTEO [Suspect]
     Active Substance: TERIPARATIDE
     Dosage: 20 UG, QD
     Route: 058
  3. FORTEO [Suspect]
     Active Substance: TERIPARATIDE
     Dosage: 20 UG, QD
     Route: 058
  4. FORTEO [Suspect]
     Active Substance: TERIPARATIDE
     Dosage: 20 UG, QD
     Route: 058
  5. FORTEO [Suspect]
     Active Substance: TERIPARATIDE
     Indication: OSTEOPOROSIS
     Dosage: 20 UG, QD
     Route: 058
     Dates: start: 20100914
  6. FORTEO [Suspect]
     Active Substance: TERIPARATIDE
     Dosage: 20 UG, QD
     Route: 058

REACTIONS (21)
  - Feeling abnormal [Recovering/Resolving]
  - Vomiting [Unknown]
  - Viral infection [Recovering/Resolving]
  - Limb discomfort [Unknown]
  - Dizziness [Not Recovered/Not Resolved]
  - Drug dose omission [Unknown]
  - Abdominal discomfort [Unknown]
  - Nasopharyngitis [Recovering/Resolving]
  - Abdominal pain [Unknown]
  - Intentional product misuse [Not Recovered/Not Resolved]
  - Viral infection [Unknown]
  - Nasopharyngitis [Recovered/Resolved]
  - Poor quality sleep [Unknown]
  - Flatulence [Unknown]
  - Fatigue [Unknown]
  - Eating disorder [Unknown]
  - Dysgeusia [Unknown]
  - Influenza [Recovering/Resolving]
  - Influenza [Recovered/Resolved]
  - Intentional product misuse [Recovered/Resolved]
  - Medication error [Unknown]

NARRATIVE: CASE EVENT DATE: 20100914
